FAERS Safety Report 15764978 (Version 1)
Quarter: 2018Q4

REPORT INFORMATION
  Report Type: Spontaneous
  Country: US (occurrence: US)
  Receive Date: 20181218
  Receipt Date: 20181218
  Transmission Date: 20190205
  Serious: No
  Sender: FDA-Public Use
  Company Number: None

PATIENT

DRUGS (2)
  1. VOSEVI [Suspect]
     Active Substance: SOFOSBUVIR\VELPATASVIR\VOXILAPREVIR
  2. EPCLUSA [Suspect]
     Active Substance: SOFOSBUVIR\VELPATASVIR

REACTIONS (8)
  - Product dispensing error [None]
  - Multiple organ dysfunction syndrome [None]
  - Rhabdomyolysis [None]
  - Pulmonary oedema [None]
  - Cardiac failure acute [None]
  - Physical product label issue [None]
  - Fluid overload [None]
  - Wrong product administered [None]
